FAERS Safety Report 9117794 (Version 3)
Quarter: 2013Q1

REPORT INFORMATION
  Report Type: Spontaneous
  Country: PH (occurrence: PH)
  Receive Date: 20130225
  Receipt Date: 20130325
  Transmission Date: 20140127
  Serious: Yes (Death, Hospitalization)
  Sender: FDA-Public Use
  Company Number: PH-MERCK-1302PHL010874

PATIENT
  Age: 83 Year
  Sex: Male

DRUGS (1)
  1. JANUVIA [Suspect]
     Dosage: 50 MG, QD
     Route: 048

REACTIONS (3)
  - Cardiac disorder [Fatal]
  - Decreased appetite [Unknown]
  - Blood potassium increased [Unknown]
